FAERS Safety Report 9897915 (Version 1)
Quarter: 2014Q1

REPORT INFORMATION
  Report Type: Spontaneous
  Country: GB (occurrence: GB)
  Receive Date: 20140214
  Receipt Date: 20140214
  Transmission Date: 20141002
  Serious: Yes (Other)
  Sender: FDA-Public Use
  Company Number: GB-BRISTOL-MYERS SQUIBB COMPANY-20137188

PATIENT
  Age: 47 Year
  Sex: Female

DRUGS (3)
  1. ELIQUIS [Suspect]
     Indication: DEEP VEIN THROMBOSIS
     Route: 048
     Dates: start: 20131228, end: 20140115
  2. FLECAINIDE [Concomitant]
  3. RAMIPRIL [Concomitant]

REACTIONS (4)
  - Dyspepsia [Recovering/Resolving]
  - Urticaria [Recovering/Resolving]
  - Rash [Recovering/Resolving]
  - Paraesthesia [Recovering/Resolving]
